FAERS Safety Report 5976030-5 (Version None)
Quarter: 2008Q4

REPORT INFORMATION
  Report Type: 
  Country: None (occurrence: None)
  Receive Date: 20081202
  Receipt Date: 20081120
  Transmission Date: 20090506
  Serious: Yes (Life-Threatening)
  Sender: FDA-Public Use
  Company Number: FR-ROCHE-598633

PATIENT
  Sex: Female

DRUGS (3)
  1. KYTRIL [Suspect]
     Indication: DRUG USE FOR UNKNOWN INDICATION
     Dosage: FREQUENCY:QD
     Route: 042
     Dates: start: 20081010, end: 20081010
  2. ERBITUX [Suspect]
     Indication: RECTAL CANCER
     Dosage: FORM:INJETABLE SOLUTION.DOSAGE:490 MG ONCE.
     Route: 042
     Dates: start: 20081010, end: 20081010
  3. XANAX [Concomitant]
     Indication: PREMEDICATION
     Dosage: FREQUENCY:1 TALET QD
     Route: 048
     Dates: start: 20081009, end: 20081010

REACTIONS (1)
  - BRONCHOSPASM [None]
